FAERS Safety Report 9525712 (Version 1)
Quarter: 2013Q3

REPORT INFORMATION
  Report Type: Spontaneous
  Country: IT (occurrence: IT)
  Receive Date: 20130916
  Receipt Date: 20130916
  Transmission Date: 20140515
  Serious: Yes (Hospitalization)
  Sender: FDA-Public Use
  Company Number: IT-SANOFI-AVENTIS-2013SA089988

PATIENT
  Age: 78 Year
  Sex: Male

DRUGS (5)
  1. LASIX [Suspect]
     Indication: HYPERTENSION
     Route: 048
     Dates: start: 20121031, end: 20121102
  2. ZOLOFT [Concomitant]
     Dosage: STRENGTH: 50 MG
  3. WELLBUTRIN [Concomitant]
  4. LOSARTAN [Concomitant]
  5. NEBIVOLOL [Concomitant]

REACTIONS (1)
  - Syncope [Recovered/Resolved]
